FAERS Safety Report 4837343-3 (Version None)
Quarter: 2005Q4

REPORT INFORMATION
  Report Type: 
  Country: None (occurrence: None)
  Receive Date: 20051128
  Receipt Date: 20051116
  Transmission Date: 20060501
  Serious: Yes (Hospitalization, Other)
  Sender: FDA-Public Use
  Company Number: GB-JNJFOC-20051104281

PATIENT
  Sex: Female
  Weight: 53 kg

DRUGS (9)
  1. REMICADE [Suspect]
     Indication: RHEUMATOID ARTHRITIS
     Route: 042
  2. ISONIAZID [Concomitant]
     Route: 065
  3. PYRIDOXINE HCL [Concomitant]
     Route: 065
  4. FOLIC ACID [Concomitant]
     Route: 065
  5. FERROUS SULFATE TAB [Concomitant]
     Route: 065
  6. CO-PROXAMOL [Concomitant]
     Route: 065
  7. CO-PROXAMOL [Concomitant]
     Route: 065
  8. METHOTREXATE [Concomitant]
     Route: 065
  9. HRT [Concomitant]
     Route: 065

REACTIONS (1)
  - BREAST CANCER [None]
